FAERS Safety Report 12965501 (Version 2)
Quarter: 2016Q4

REPORT INFORMATION
  Report Type: Spontaneous
  Country: CA (occurrence: CA)
  Receive Date: 20161122
  Receipt Date: 20161214
  Transmission Date: 20170207
  Serious: Yes (Disabling)
  Sender: FDA-Public Use
  Company Number: CA-SYMPLMED PHARMACEUTICALS-2016SYMPLMED000356

PATIENT

DRUGS (3)
  1. COVERSYL [Suspect]
     Active Substance: PERINDOPRIL
     Indication: HYPERTENSION
     Dosage: 8 MG, QD
     Route: 048
     Dates: start: 20161004
  2. ASPIRIN                            /00002701/ [Concomitant]
     Active Substance: ASPIRIN
     Indication: PROPHYLAXIS
     Dosage: UNK
  3. AMLODIPINE BESILATE [Concomitant]
     Active Substance: AMLODIPINE BESYLATE
     Indication: HYPERTENSION
     Dosage: 10 MG, QD
     Dates: start: 20161004

REACTIONS (8)
  - Insomnia [Unknown]
  - Ocular hyperaemia [Unknown]
  - Peripheral swelling [Recovering/Resolving]
  - Back pain [Unknown]
  - Epistaxis [Unknown]
  - Dyspepsia [Unknown]
  - Erythema [Unknown]
  - Pain in extremity [Recovering/Resolving]

NARRATIVE: CASE EVENT DATE: 201610
